FAERS Safety Report 11238053 (Version 1)
Quarter: 2015Q3

REPORT INFORMATION
  Report Type: Spontaneous
  Country: US (occurrence: US)
  Receive Date: 20150703
  Receipt Date: 20150703
  Transmission Date: 20151125
  Serious: No
  Sender: FDA-Public Use
  Company Number: US-ASTRAZENECA-2015SE62104

PATIENT
  Sex: Male

DRUGS (3)
  1. CRESTOR [Suspect]
     Active Substance: ROSUVASTATIN CALCIUM
     Route: 048
  2. CRESTOR [Suspect]
     Active Substance: ROSUVASTATIN CALCIUM
     Route: 048
  3. CRESTOR [Suspect]
     Active Substance: ROSUVASTATIN CALCIUM
     Dosage: GENERIC
     Route: 048

REACTIONS (7)
  - Chills [Unknown]
  - Hyperhidrosis [Unknown]
  - Dizziness [Unknown]
  - Intentional product misuse [Unknown]
  - Adverse drug reaction [Unknown]
  - Drug ineffective [Unknown]
  - Gastrointestinal pain [Unknown]
